FAERS Safety Report 18468000 (Version 1)
Quarter: 2020Q4

REPORT INFORMATION
  Report Type: Spontaneous
  Country: US (occurrence: US)
  Receive Date: 20201105
  Receipt Date: 20201105
  Transmission Date: 20210114
  Serious: Yes (Other)
  Sender: FDA-Public Use
  Company Number: US-PFIZER INC-2015165908

PATIENT
  Age: 72 Year
  Sex: Female

DRUGS (26)
  1. ASPIRIN. [Concomitant]
     Active Substance: ASPIRIN
     Dosage: 325 MG, UNK
     Route: 048
     Dates: start: 20140428
  2. ATIVAN [Concomitant]
     Active Substance: LORAZEPAM
     Indication: ANXIETY
     Dosage: 1 MG, AS NEEDED (1-Q8HR)
     Dates: start: 20120127
  3. AMOXICILLIN. [Concomitant]
     Active Substance: AMOXICILLIN
     Dosage: 500 MG, 3X/DAY
     Dates: start: 20141211
  4. NYSTATIN. [Concomitant]
     Active Substance: NYSTATIN
     Dosage: UNK, 4X/DAY (100000 UNIT/ML SUSP ; 1 TEASPOON FULL SWISH AND SWALLOW)
     Dates: start: 20131213
  5. HYDROCHLOROTHIAZIDE. [Concomitant]
     Active Substance: HYDROCHLOROTHIAZIDE
     Dosage: 25 MG, DAILY
     Route: 048
     Dates: start: 20120127
  6. TRIAMCINOLONE ACETONIDE. [Concomitant]
     Active Substance: TRIAMCINOLONE ACETONIDE
     Indication: MOUTH ULCERATION
     Dosage: UNK, 3X/DAY (0.1 % PASTE )
     Route: 048
     Dates: start: 20121203
  7. TRAMADOL HCL [Concomitant]
     Active Substance: TRAMADOL HYDROCHLORIDE
     Indication: PAIN
     Dosage: 100 MG, UNK (2 TABLETS EVERY 6-8 HOURS)
     Dates: start: 20140428
  8. IBUPROFEN. [Concomitant]
     Active Substance: IBUPROFEN
     Indication: PAIN
     Dosage: 800 MG, AS NEEDED (1 TABLET EVERY 8 HOURS)
     Dates: start: 20150507
  9. LYRICA [Suspect]
     Active Substance: PREGABALIN
     Indication: PAIN
     Dosage: 200 MG, 3X/DAY
     Dates: start: 20150507
  10. LOMOTIL [Concomitant]
     Active Substance: ATROPINE SULFATE\DIPHENOXYLATE HYDROCHLORIDE
     Indication: DIARRHOEA
     Dosage: UNK, AS NEEDED (DIPHENOXYLATE: 2.5/ ATROPINE: 0.025) (1-Q6HR)
     Dates: start: 20120326
  11. PROCHLORPERAZINE MALEATE. [Concomitant]
     Active Substance: PROCHLORPERAZINE MALEATE
     Indication: NAUSEA
     Dosage: 10 MG, AS NEEDED (1-Q6HR)
     Dates: start: 20120326
  12. METFORMIN HCL [Concomitant]
     Active Substance: METFORMIN HYDROCHLORIDE
     Dosage: 500 MG, UNK (1 AFTER BREAKFAST 1 AFTER DINNER)
     Dates: start: 20120705
  13. AMOXICILLIN. [Concomitant]
     Active Substance: AMOXICILLIN
     Dosage: 500 MG, 3X/DAY
     Dates: start: 20131202
  14. AZATHIOPRINE. [Concomitant]
     Active Substance: AZATHIOPRINE
     Dosage: 100 MG, 1X/DAY (50 MG TABS (AZATHIOPRINE), TAKE 2 TABLETS ONCE A DAY)
     Dates: start: 20140808
  15. NORVASC [Concomitant]
     Active Substance: AMLODIPINE BESYLATE
     Dosage: 5 MG, DAILY
     Route: 048
     Dates: start: 20111003
  16. TRIAMCINOLONE ACETONIDE. [Concomitant]
     Active Substance: TRIAMCINOLONE ACETONIDE
     Dosage: 0.1 %, 2X/DAY (APPLY TO FACE) (0.1 % CREAM )
     Dates: start: 20130829
  17. XYLOCAINE-MPF [Concomitant]
     Active Substance: LIDOCAINE HYDROCHLORIDE
     Dosage: UNK (1 TABLESPOON FULL IN A HALF A GLASS OF WATER GARGLE 3-4 TIMES A DAY)
     Dates: start: 20131209
  18. PREDNISONE. [Concomitant]
     Active Substance: PREDNISONE
     Dosage: 5 MG, DAILY
     Dates: start: 20111202
  19. FUROSEMIDE. [Concomitant]
     Active Substance: FUROSEMIDE
     Dosage: 40 MG, 2X/DAY
     Dates: start: 20120703
  20. OMEPRAZOLE. [Concomitant]
     Active Substance: OMEPRAZOLE
     Indication: GASTROOESOPHAGEAL REFLUX DISEASE
     Dosage: 20 MG, UNK (1 BEFORE BREAKFAST)
     Dates: start: 20131209
  21. K-TAB 20 MEQ CR [Concomitant]
     Indication: MINERAL SUPPLEMENTATION
     Dosage: 20 MEQ, DAILY
     Dates: start: 20141201
  22. PLAQUENIL [Concomitant]
     Active Substance: HYDROXYCHLOROQUINE SULFATE
     Dosage: 200 MG, 2X/DAY
     Dates: start: 20140808
  23. HYDROCODONE-ACETAMINOPHEN [Concomitant]
     Active Substance: ACETAMINOPHEN\HYDROCODONE
     Indication: PAIN
     Dosage: UNK MG, AS NEEDED (HYDROCODONE-ACETAMINOPHEN 7.5-325 MG ) (1-Q6HR)
     Dates: start: 20121030
  24. NEOMYCIN-POLYMYXIN-HC [Concomitant]
     Indication: EAR INFECTION
     Dosage: UNK, 3X/DAY (NEOMYCIN-POLYMYXIN-HC 3.5-10000-1 SUSP; PLACE, 5 DROPS IN THE EFFECTED EAR)
     Dates: start: 20140328
  25. CLARITIN [Concomitant]
     Active Substance: LORATADINE
     Dosage: 10 MG, DAILY
     Route: 048
     Dates: start: 20130208
  26. HIBICLENS [Concomitant]
     Active Substance: CHLORHEXIDINE GLUCONATE
     Dosage: UNK, 2X/DAY (HIBICLENS 4 % LIQD )
     Route: 061
     Dates: start: 20150205

REACTIONS (2)
  - Neuropathy peripheral [Unknown]
  - Pain in extremity [Unknown]
